FAERS Safety Report 5320343-7 (Version None)
Quarter: 2007Q2

REPORT INFORMATION
  Report Type: 
  Country: None (occurrence: None)
  Receive Date: 20070509
  Receipt Date: 20070427
  Transmission Date: 20071010
  Serious: Yes (Life-Threatening, Hospitalization, Disabling)
  Sender: FDA-Public Use
  Company Number: JP-ELI_LILLY_AND_COMPANY-JP200704000729

PATIENT
  Age: 32 Year
  Sex: Male
  Weight: 61.5 kg

DRUGS (19)
  1. LANDSEN [Concomitant]
     Indication: PROPHYLAXIS
     Dosage: 2 MG, DAILY (1/D)
     Route: 048
     Dates: start: 20040131, end: 20040711
  2. AKINETON [Concomitant]
     Indication: PROPHYLAXIS
     Dosage: 1 MG, DAILY (1/D)
     Route: 048
     Dates: start: 20040522, end: 20040711
  3. AKINETON [Concomitant]
     Dosage: 1 MG, 3/D
     Route: 048
     Dates: start: 20040714, end: 20040714
  4. AKINETON [Concomitant]
     Dosage: 2.5 MG, 2/D
     Route: 042
     Dates: start: 20040714, end: 20040716
  5. CERCINE [Concomitant]
     Indication: SEDATION
     Dosage: 5 MG, DAILY (1/D)
     Route: 030
     Dates: start: 20040713, end: 20040713
  6. CERCINE [Concomitant]
     Route: 030
     Dates: start: 20040804
  7. HALOPERIDOL [Concomitant]
     Indication: SCHIZOPHRENIA
     Dosage: 5 MG, DAILY (1/D)
     Route: 042
     Dates: start: 20040713, end: 20040713
  8. HALOPERIDOL [Concomitant]
     Dosage: 1 MG, 3/D
     Route: 048
     Dates: start: 20040714, end: 20040714
  9. HALOPERIDOL [Concomitant]
     Dosage: 5 MG, DAILY (1/D)
     Route: 042
     Dates: start: 20040714, end: 20040714
  10. ANATENSOL [Concomitant]
     Indication: SCHIZOPHRENIA
     Dosage: 25 MG, DAILY (1/D)
     Route: 030
     Dates: start: 20040713, end: 20040713
  11. GASTER [Concomitant]
     Indication: PROPHYLAXIS
     Dosage: 20 MG, DAILY (1/D)
     Route: 042
     Dates: start: 20040714, end: 20040716
  12. DANTRIUM [Concomitant]
     Indication: PROPHYLAXIS
     Dosage: 50 MG, 3/D
     Route: 048
     Dates: start: 20040716, end: 20040720
  13. DANTRIUM [Concomitant]
     Dosage: 20 MG, UNK
     Route: 042
     Dates: start: 20040718, end: 20040718
  14. DANTRIUM [Concomitant]
     Dosage: 80 MG, UNK
     Route: 042
     Dates: start: 20040719, end: 20040719
  15. DANTRIUM [Concomitant]
     Dosage: 180 MG, UNK
     Route: 042
     Dates: start: 20040720, end: 20040726
  16. DANTRIUM [Concomitant]
     Dosage: 120 MG, UNK
     Route: 042
     Dates: start: 20040727, end: 20040728
  17. DANTRIUM [Concomitant]
     Dosage: 80 MG, UNK
     Route: 043
     Dates: start: 20040729, end: 20040730
  18. DANTRIUM [Concomitant]
     Dosage: 40 MG, UNK
     Route: 042
     Dates: start: 20040731, end: 20040802
  19. ZYPREXA [Suspect]
     Indication: SCHIZOPHRENIA, DISORGANISED TYPE
     Dosage: 2.5 MG, DAILY (1/D)
     Route: 048
     Dates: start: 20040131, end: 20040711

REACTIONS (5)
  - BRAIN HERNIATION [None]
  - CARDIAC ARREST [None]
  - CLONIC CONVULSION [None]
  - ECZEMA [None]
  - NEUROLEPTIC MALIGNANT SYNDROME [None]
